FAERS Safety Report 6374442-1 (Version None)
Quarter: 2009Q3

REPORT INFORMATION
  Report Type: 
  Country: None (occurrence: None)
  Receive Date: 20090924
  Receipt Date: 20090914
  Transmission Date: 20100115
  Serious: Yes (Other)
  Sender: FDA-Public Use
  Company Number: KR-PFIZER INC-2006060503

PATIENT
  Age: 68 Year

DRUGS (1)
  1. SUNITINIB MALATE [Suspect]
     Indication: GASTROINTESTINAL STROMAL TUMOUR
     Dosage: TDD 37.5 MG, 1X/DAY, EVERY DAY
     Route: 048
     Dates: start: 20060214, end: 20060423

REACTIONS (1)
  - PLEURAL EFFUSION [None]
